FAERS Safety Report 6667001-4 (Version None)
Quarter: 2010Q1

REPORT INFORMATION
  Report Type: 
  Country: None (occurrence: None)
  Receive Date: 20100331
  Receipt Date: 20100325
  Transmission Date: 20100710
  Serious: Yes (Hospitalization)
  Sender: FDA-Public Use
  Company Number: 2010SP018145

PATIENT
  Age: 74 Year
  Sex: Female

DRUGS (5)
  1. ORGARAN [Suspect]
     Indication: THROMBOCYTOPENIA
     Dosage: 750 IU; TID; SC
     Route: 058
     Dates: start: 20100204, end: 20100212
  2. HEPARIN SODIUM (OTHER MFR) (HEPARIN SODIUM /00027704/) [Suspect]
     Indication: PULMONARY EMBOLISM
     Dosage: IV
     Route: 042
     Dates: start: 20100125, end: 20100204
  3. SECTRAL [Concomitant]
  4. FUROSEMIDE [Concomitant]
  5. KARDEGIC [Concomitant]

REACTIONS (6)
  - DEEP VEIN THROMBOSIS [None]
  - DRUG HYPERSENSITIVITY [None]
  - HEPARIN-INDUCED THROMBOCYTOPENIA [None]
  - LEG AMPUTATION [None]
  - POPLITEAL PULSE ABNORMAL [None]
  - THROMBOPHLEBITIS SUPERFICIAL [None]
